FAERS Safety Report 10926593 (Version 1)
Quarter: 2015Q1

REPORT INFORMATION
  Report Type: Spontaneous
  Country: US (occurrence: US)
  Receive Date: 20150318
  Receipt Date: 20150318
  Transmission Date: 20150721
  Serious: Yes (Death, Hospitalization)
  Sender: FDA-Public Use
  Company Number: US-JNJFOC-20131110940

PATIENT
  Age: 95 Year
  Sex: Male
  Weight: 72.58 kg

DRUGS (2)
  1. LUBRIDERM [Suspect]
     Active Substance: AVOBENZONE\HOMOSALATE\OCTISALATE\OCTOCRYLENE\OXYBENZONE
     Indication: DRY SKIN
     Route: 061
  2. LUBRIDERM [Suspect]
     Active Substance: AVOBENZONE\HOMOSALATE\OCTISALATE\OCTOCRYLENE\OXYBENZONE
     Indication: DRY SKIN
     Route: 061

REACTIONS (3)
  - Product quality issue [Unknown]
  - Myocardial infarction [None]
  - Hospitalisation [Recovered/Resolved]

NARRATIVE: CASE EVENT DATE: 20130513
